FAERS Safety Report 12954032 (Version 1)
Quarter: 2016Q4

REPORT INFORMATION
  Report Type: Report from Study
  Country: PT (occurrence: PT)
  Receive Date: 20161118
  Receipt Date: 20161118
  Transmission Date: 20170207
  Serious: Yes (Hospitalization, Other)
  Sender: FDA-Public Use
  Company Number: PT-ROCHE-1851591

PATIENT

DRUGS (8)
  1. TOCILIZUMAB [Suspect]
     Active Substance: TOCILIZUMAB
     Indication: RHEUMATOID ARTHRITIS
     Route: 058
  2. TOCILIZUMAB [Suspect]
     Active Substance: TOCILIZUMAB
     Indication: RHEUMATOID ARTHRITIS
     Route: 042
  3. TOCILIZUMAB [Suspect]
     Active Substance: TOCILIZUMAB
     Indication: JUVENILE IDIOPATHIC ARTHRITIS
  4. METHOTREXATE. [Suspect]
     Active Substance: METHOTREXATE
     Indication: JUVENILE IDIOPATHIC ARTHRITIS
  5. METHOTREXATE. [Suspect]
     Active Substance: METHOTREXATE
     Indication: RHEUMATOID ARTHRITIS
     Route: 065
  6. HYDROXYCHLOROQUINE [Concomitant]
     Active Substance: HYDROXYCHLOROQUINE
     Indication: RHEUMATOID ARTHRITIS
  7. TOCILIZUMAB [Suspect]
     Active Substance: TOCILIZUMAB
     Indication: JUVENILE IDIOPATHIC ARTHRITIS
  8. HYDROXYCHLOROQUINE [Concomitant]
     Active Substance: HYDROXYCHLOROQUINE
     Indication: JUVENILE IDIOPATHIC ARTHRITIS

REACTIONS (24)
  - Varicella zoster virus infection [Unknown]
  - Diverticulitis [Unknown]
  - Weight decreased [Unknown]
  - Diarrhoea [Unknown]
  - Herpes zoster [Unknown]
  - Hypercholesterolaemia [Unknown]
  - Oral herpes [Unknown]
  - Thrombocytopenia [Unknown]
  - Eosinophilia [Unknown]
  - Dyspnoea [Unknown]
  - Leukopenia [Unknown]
  - Cellulitis [Unknown]
  - Neutropenia [Unknown]
  - Herpes simplex [Unknown]
  - Blood pressure increased [Unknown]
  - Off label use [Unknown]
  - Upper respiratory tract infection [Unknown]
  - Idiosyncratic drug reaction [Unknown]
  - Pneumonia [Unknown]
  - Transaminases increased [Unknown]
  - Cough [Unknown]
  - Aphthous ulcer [Unknown]
  - Weight increased [Unknown]
  - Vulvovaginal pruritus [Unknown]
